FAERS Safety Report 19868907 (Version 1)
Quarter: 2021Q3

REPORT INFORMATION
  Report Type: Spontaneous
  Country: JP (occurrence: JP)
  Receive Date: 20210922
  Receipt Date: 20210922
  Transmission Date: 20211014
  Serious: Yes (Hospitalization, Other)
  Sender: FDA-Public Use
  Company Number: JP-PFIZER INC-202101195907

PATIENT
  Sex: Male

DRUGS (1)
  1. CELECOXIB. [Suspect]
     Active Substance: CELECOXIB
     Route: 048

REACTIONS (7)
  - Back pain [Not Recovered/Not Resolved]
  - Testis discomfort [Unknown]
  - Pain in extremity [Not Recovered/Not Resolved]
  - Urinary incontinence [Unknown]
  - Diarrhoea [Unknown]
  - Hypoaesthesia [Not Recovered/Not Resolved]
  - Abdominal pain [Unknown]
